FAERS Safety Report 13613406 (Version 1)
Quarter: 2017Q2

REPORT INFORMATION
  Report Type: Spontaneous
  Country: US (occurrence: US)
  Receive Date: 20170605
  Receipt Date: 20170605
  Transmission Date: 20170830
  Serious: Yes (Other)
  Sender: FDA-Public Use
  Company Number: US-ZYDUS-015350

PATIENT
  Age: 30 Year
  Sex: Female

DRUGS (3)
  1. OXYCODONE [Suspect]
     Active Substance: OXYCODONE
     Indication: PAIN
     Route: 065
  2. OXYCODONE [Suspect]
     Active Substance: OXYCODONE
     Indication: PAIN
     Route: 065
  3. OXYCODONE [Suspect]
     Active Substance: OXYCODONE
     Indication: PAIN
     Dosage: 60 MG TOTAL DAILY
     Route: 065

REACTIONS (6)
  - Exposure during pregnancy [Unknown]
  - Drug withdrawal syndrome [Recovered/Resolved]
  - Irritability [Recovered/Resolved]
  - Intentional product misuse [Recovered/Resolved]
  - Anxiety [Recovered/Resolved]
  - Drug use disorder, antepartum [Recovered/Resolved]
